FAERS Safety Report 12218310 (Version 1)
Quarter: 2016Q1

REPORT INFORMATION
  Report Type: Spontaneous
  Country: GB (occurrence: GB)
  Receive Date: 20160329
  Receipt Date: 20160329
  Transmission Date: 20160526
  Serious: Yes (Hospitalization, Other)
  Sender: FDA-Public Use
  Company Number: GB-TEVA-645945ACC

PATIENT
  Sex: Female

DRUGS (4)
  1. ADOPORT (SANDOZ) [Suspect]
     Active Substance: TACROLIMUS
     Indication: IMMUNOSUPPRESSION
     Route: 065
  2. PREDNISOLONE (ACTAVIS) [Suspect]
     Active Substance: PREDNISOLONE
     Indication: IMMUNOSUPPRESSION
     Route: 065
  3. MYFENAX [Suspect]
     Active Substance: MYCOPHENOLATE MOFETIL
     Indication: IMMUNOSUPPRESSION
     Route: 065
  4. ADOPORT (SANDOZ) [Suspect]
     Active Substance: TACROLIMUS
     Route: 065

REACTIONS (2)
  - Dyspnoea [Unknown]
  - Coma [Unknown]
